FAERS Safety Report 5963985-8 (Version None)
Quarter: 2008Q4

REPORT INFORMATION
  Report Type: 
  Country: None (occurrence: None)
  Receive Date: 20081124
  Receipt Date: 20081114
  Transmission Date: 20090506
  Serious: Yes (Hospitalization)
  Sender: FDA-Public Use
  Company Number: JP-B.I. PHARMACEUTICALS,INC./RIDGEFIELD-2008-DE-06653GD

PATIENT
  Age: 55 Year
  Sex: Female

DRUGS (4)
  1. SIFROL [Suspect]
     Indication: PARKINSON'S DISEASE
     Dosage: 1.5MG
     Route: 048
  2. AMANTADINE HCL [Concomitant]
     Indication: PARKINSON'S DISEASE
     Dosage: 100MG
  3. COMBINATION WITH L-DOPA [Concomitant]
     Indication: PARKINSON'S DISEASE
     Dosage: 300MG
  4. TRIHEXYPHENIDYL HYDROCHLORIDE [Concomitant]
     Indication: PARKINSON'S DISEASE
     Dosage: 2MG

REACTIONS (3)
  - NEUROLEPTIC MALIGNANT SYNDROME [None]
  - PITTING OEDEMA [None]
  - STRESS CARDIOMYOPATHY [None]
